FAERS Safety Report 9505902 (Version 1)
Quarter: 2013Q1

REPORT INFORMATION
  Report Type: Spontaneous
  Country: US (occurrence: None)
  Receive Date: 20130219
  Receipt Date: 20130219
  Transmission Date: 20140127
  Serious: Yes (Other)
  Sender: FDA-Public Use
  Company Number: 074603

PATIENT
  Sex: Female

DRUGS (5)
  1. LACOSAMIDE [Suspect]
     Dosage: EVENING
     Dates: start: 20130103, end: 20130103
  2. KEPPRA [Concomitant]
  3. LORAZEPAM [Concomitant]
  4. LAMICTAL [Concomitant]
  5. TRIAMCINOLONE ACETONIDE [Concomitant]

REACTIONS (4)
  - Convulsion [None]
  - Pruritus generalised [None]
  - Insomnia [None]
  - Agitation [None]
